FAERS Safety Report 18155922 (Version 1)
Quarter: 2020Q3

REPORT INFORMATION
  Report Type: Spontaneous
  Country: DE (occurrence: DE)
  Receive Date: 20200817
  Receipt Date: 20200817
  Transmission Date: 20201103
  Serious: Yes (Hospitalization)
  Sender: FDA-Public Use
  Company Number: DE-JNJFOC-20200814068

PATIENT
  Age: 23 Year
  Sex: Male

DRUGS (3)
  1. TAVOR (LORAZEPAM) [Suspect]
     Active Substance: LORAZEPAM
     Indication: PRODUCT USED FOR UNKNOWN INDICATION
     Route: 065
  2. IBUPROFEN. [Suspect]
     Active Substance: IBUPROFEN
     Indication: PRODUCT USED FOR UNKNOWN INDICATION
     Dosage: 600 MG, 1?0?1?0
     Route: 065
  3. ORTOTON                            /00047901/ [Suspect]
     Active Substance: METHOCARBAMOL
     Indication: PRODUCT USED FOR UNKNOWN INDICATION
     Dosage: 750 MG, 1?1?1?0
     Route: 065

REACTIONS (7)
  - Migraine [Unknown]
  - Visual impairment [Unknown]
  - Nausea [Unknown]
  - Paraesthesia [Unknown]
  - Phonophobia [Unknown]
  - Photophobia [Unknown]
  - Headache [Unknown]
